FAERS Safety Report 22361159 (Version 1)
Quarter: 2023Q2

REPORT INFORMATION
  Report Type: Spontaneous
  Country: US (occurrence: US)
  Receive Date: 20230524
  Receipt Date: 20230524
  Transmission Date: 20230721
  Serious: Yes (Other)
  Sender: FDA-Public Use
  Company Number: US-JNJFOC-20230540162

PATIENT
  Sex: Male

DRUGS (3)
  1. BENADRYL [Suspect]
     Active Substance: DIPHENHYDRAMINE HYDROCHLORIDE
     Indication: Product used for unknown indication
     Route: 065
     Dates: start: 201704
  2. KRYSTEXXA [Concomitant]
     Active Substance: PEGLOTICASE
     Indication: Gout
     Dosage: 1ST DOSE
     Route: 065
  3. KRYSTEXXA [Concomitant]
     Active Substance: PEGLOTICASE
     Dosage: 2ND DOSE
     Route: 065
     Dates: start: 201704

REACTIONS (1)
  - Loss of consciousness [Recovered/Resolved]

NARRATIVE: CASE EVENT DATE: 20170401
